FAERS Safety Report 8316612-9 (Version None)
Quarter: 2012Q2

REPORT INFORMATION
  Report Type: 
  Country: None (occurrence: None)
  Receive Date: 20120427
  Receipt Date: 20120423
  Transmission Date: 20120825
  Serious: Yes (Death, Hospitalization, Other)
  Sender: FDA-Public Use
  Company Number: PHHY2012CO020985

PATIENT
  Sex: Female

DRUGS (12)
  1. SANDOSTATIN LAR [Suspect]
     Indication: PANCREATIC NEUROENDOCRINE TUMOUR
     Dosage: 20 MG UNK
     Route: 030
     Dates: start: 20110205, end: 20111230
  2. MORPHINE [Concomitant]
  3. ONDANSETRON [Concomitant]
  4. VITAMIN K TAB [Concomitant]
  5. TEMOZOLOMIDE [Concomitant]
  6. CAPECITABINE [Concomitant]
  7. CARBOPLATIN [Concomitant]
  8. PREDNISOLONE [Concomitant]
  9. ZOLEDRONIC [Concomitant]
  10. ETOPOSIDE [Concomitant]
  11. OMEPRAZOLE [Concomitant]
  12. RANITIDINE [Concomitant]

REACTIONS (13)
  - DIZZINESS [None]
  - NEOPLASM PROGRESSION [None]
  - HAEMATEMESIS [None]
  - DEATH [None]
  - RENAL DISORDER [None]
  - JAUNDICE [None]
  - NEOPLASM MALIGNANT [None]
  - BLOOD ELECTROLYTES INCREASED [None]
  - ASTHENIA [None]
  - METASTASES TO LIVER [None]
  - SOMNOLENCE [None]
  - DYSPNOEA [None]
  - METASTASES TO SPINE [None]
